FAERS Safety Report 23900664 (Version 1)
Quarter: 2024Q2

REPORT INFORMATION
  Report Type: Report from Study
  Country: US (occurrence: US)
  Receive Date: 20240526
  Receipt Date: 20240526
  Transmission Date: 20240716
  Serious: Yes (Hospitalization, Other)
  Sender: FDA-Public Use
  Company Number: US-ABBVIE-5773258

PATIENT
  Age: 83 Year
  Sex: Female

DRUGS (4)
  1. COMBIGAN [Suspect]
     Active Substance: BRIMONIDINE TARTRATE\TIMOLOL MALEATE
     Indication: Product used for unknown indication
     Dosage: 2MG/ML;TIMOLOL 6.8MG/ML
     Route: 047
  2. LUMIGAN [Suspect]
     Active Substance: BIMATOPROST
     Indication: Product used for unknown indication
     Dosage: 0.3MG/ML
     Route: 047
  3. PREDNISONE [Concomitant]
     Active Substance: PREDNISONE
     Indication: Product used for unknown indication
  4. REPHRESH [Concomitant]
     Indication: Product used for unknown indication

REACTIONS (1)
  - Cardiac dysfunction [Recovering/Resolving]

NARRATIVE: CASE EVENT DATE: 20240520
